FAERS Safety Report 9851920 (Version 1)
Quarter: 2013Q4

REPORT INFORMATION
  Report Type: Spontaneous
  Country: US (occurrence: None)
  Receive Date: 20131127
  Receipt Date: 20131127
  Transmission Date: 20140711
  Serious: No
  Sender: FDA-Public Use
  Company Number: 224475LEO

PATIENT
  Sex: Male

DRUGS (1)
  1. PICATO (INGENOL MEBUTATE) (0.05 %, GEL) [Suspect]
     Indication: ACTINIC KERATOSIS
     Dosage: GEL, ONCE DAILY FOR 2 DAYS, TOPICAL
     Dates: start: 20131028, end: 20131029

REACTIONS (2)
  - Application site pruritus [None]
  - Application site erosion [None]
